FAERS Safety Report 7264709-7 (Version None)
Quarter: 2011Q1

REPORT INFORMATION
  Report Type: 
  Country: None (occurrence: None)
  Receive Date: 20110131
  Receipt Date: 20110129
  Transmission Date: 20110831
  Serious: No
  Sender: FDA-Public Use
  Company Number: US-PFIZER INC-2010179089

PATIENT
  Sex: Female
  Weight: 118.82 kg

DRUGS (13)
  1. NEXIUM [Concomitant]
     Indication: GASTROOESOPHAGEAL REFLUX DISEASE
     Dosage: 40 MG, 1X/DAY
     Dates: start: 20010101
  2. METOPROLOL [Concomitant]
     Indication: HYPERTENSION
     Dosage: 50 MG, 2X/DAY
  3. DIOVAN [Concomitant]
     Indication: BLOOD PRESSURE ABNORMAL
     Dosage: 160 MG, 1X/DAY
     Route: 048
  4. CHANTIX [Suspect]
     Indication: SMOKING CESSATION THERAPY
     Dosage: 0.5 MG DAILY
     Route: 048
  5. PLAVIX [Concomitant]
     Indication: CORONARY ARTERY OCCLUSION
     Dosage: 75 MG, 1X/DAY
     Route: 048
     Dates: start: 20060401
  6. ACTOS [Concomitant]
     Indication: DIABETES MELLITUS
     Dosage: 30 MG, 1X/DAY
     Route: 048
     Dates: start: 20101201
  7. POTASSIUM [Concomitant]
     Dosage: 20 MEQ, 1X/DAY
     Dates: start: 20060101
  8. ACETYLSALICYLIC ACID [Concomitant]
     Indication: STENT PLACEMENT
     Dosage: 81 MG, 1X/DAY
     Dates: start: 20060101
  9. CHANTIX [Suspect]
     Dosage: UNK
     Route: 048
     Dates: start: 20101225
  10. PLAVIX [Concomitant]
     Indication: PERIPHERAL ARTERIAL OCCLUSIVE DISEASE
  11. DIOVAN HCT [Concomitant]
     Indication: HYPERTENSION
     Dosage: 60/12.5 MG, 1X/DAY
     Route: 048
     Dates: start: 20020101
  12. FUROSEMIDE [Concomitant]
     Indication: OEDEMA
     Dosage: 40 MG, 1X/DAY
     Dates: start: 20060101
  13. CHANTIX [Suspect]
     Dosage: 0.5 MG DAILY
     Route: 048
     Dates: start: 20101231, end: 20110122

REACTIONS (3)
  - TREMOR [None]
  - TOBACCO USER [None]
  - WEIGHT INCREASED [None]
